FAERS Safety Report 24048474 (Version 1)
Quarter: 2024Q3

REPORT INFORMATION
  Report Type: Spontaneous
  Country: EG (occurrence: EG)
  Receive Date: 20240704
  Receipt Date: 20240704
  Transmission Date: 20241016
  Serious: Yes (Life-Threatening, Hospitalization, Other)
  Sender: NOVO NORDISK
  Company Number: EG-NOVOPROD-1245593

PATIENT
  Sex: Male
  Weight: 110 kg

DRUGS (8)
  1. ACTRAPID [Suspect]
     Active Substance: INSULIN HUMAN
     Indication: Diabetes mellitus
     Dosage: 30 IU, QD (AFTER LUNCH)
     Route: 058
     Dates: start: 202305
  2. LANTUS [Concomitant]
     Active Substance: INSULIN GLARGINE
     Indication: Type 1 diabetes mellitus
     Dosage: 50 IU, QD (AT NIGHT)
     Dates: start: 202305
  3. PLAVIX [Concomitant]
     Active Substance: CLOPIDOGREL BISULFATE
     Indication: Thrombosis
     Dosage: UNK (ONE TABLET AT NIGHT)
     Dates: start: 2004
  4. ATORVASTATIN CALCIUM [Concomitant]
     Active Substance: ATORVASTATIN CALCIUM
     Indication: Blood cholesterol abnormal
     Dosage: UNK (ONE TABLET AT NIGHT)
     Dates: start: 2004
  5. BISOPROLOL FUMARATE [Concomitant]
     Active Substance: BISOPROLOL FUMARATE
     Indication: Blood pressure abnormal
     Dosage: 5MG(ONE TABLET ON AN EMPTY STOMACH)
     Dates: start: 2004
  6. ASPIRIN [Concomitant]
     Active Substance: ASPIRIN
     Indication: Thrombosis
     Dosage: UNK (TWO TABLETS AT AFTERNOON)
     Dates: start: 2004
  7. FENOFIBRATE [Concomitant]
     Active Substance: FENOFIBRATE
     Indication: Blood triglycerides abnormal
     Dosage: UNK (TWICE DAILY ONE TABLET IN THE MORNING AND ONE AT NIGHT)
     Dates: start: 202401
  8. PANTOPI [Concomitant]
     Indication: Gastrointestinal disorder
     Dosage: UNK (ONE TABLET BEFORE BREAKFAST)
     Dates: start: 2004

REACTIONS (2)
  - Loss of consciousness [Unknown]
  - Thrombosis [Unknown]
